FAERS Safety Report 11078012 (Version 1)
Quarter: 2015Q2

REPORT INFORMATION
  Report Type: Spontaneous
  Country: None (occurrence: None)
  Receive Date: 20150429
  Receipt Date: 20150429
  Transmission Date: 20150821
  Serious: Yes (Other)
  Sender: FDA-Public Use
  Company Number: None

PATIENT
  Age: 40 Year
  Sex: Male
  Weight: 68 kg

DRUGS (4)
  1. MOMENTASONE STEROIDAL NASAL SPRAY [Concomitant]
  2. OLMETEC [Suspect]
     Active Substance: OLMESARTAN MEDOXOMIL
     Indication: HYPERTENSION
     Route: 048
  3. DEPLORED ANTI HISTAMINE [Concomitant]
  4. NASAL SALINE [Concomitant]
     Active Substance: SODIUM CHLORIDE

REACTIONS (2)
  - Dyspnoea [None]
  - Nasal congestion [None]

NARRATIVE: CASE EVENT DATE: 20150401
